FAERS Safety Report 9866928 (Version 1)
Quarter: 2014Q1

REPORT INFORMATION
  Report Type: Spontaneous
  Country: US (occurrence: US)
  Receive Date: 20140204
  Receipt Date: 20140204
  Transmission Date: 20141002
  Serious: No
  Sender: FDA-Public Use
  Company Number: US-PFIZER INC-2014029725

PATIENT
  Age: 28 Year
  Sex: Female
  Weight: 108 kg

DRUGS (3)
  1. MEDROXYPROGESTERONE ACETATE [Suspect]
     Indication: CONTRACEPTION
     Dosage: 150 MG, UNK
  2. MEDROXYPROGESTERONE ACETATE [Suspect]
     Dosage: 150 MG, UNK
  3. FLOVENT [Concomitant]
     Indication: ASTHMA
     Dosage: UNK

REACTIONS (1)
  - Metrorrhagia [Unknown]
